FAERS Safety Report 6509816-9 (Version None)
Quarter: 2009Q4

REPORT INFORMATION
  Report Type: 
  Country: None (occurrence: None)
  Receive Date: 20091221
  Receipt Date: 20091221
  Transmission Date: 20100525
  Serious: Yes (Hospitalization)
  Sender: FDA-Public Use
  Company Number: None

PATIENT
  Age: 42 Year
  Sex: Female
  Weight: 49.8957 kg

DRUGS (2)
  1. ERLOTINIB HYDROCHLORIDE [Suspect]
     Indication: ADENOCARCINOMA
     Dosage: 150 MG DAILY ORAL
     Route: 048
     Dates: start: 20091029
  2. ERLOTINIB HYDROCHLORIDE [Suspect]
     Indication: METASTATIC NEOPLASM
     Dosage: 150 MG DAILY ORAL
     Route: 048
     Dates: start: 20091029

REACTIONS (2)
  - PLEURAL EFFUSION [None]
  - TACHYCARDIA [None]
